FAERS Safety Report 9270516 (Version 2)
Quarter: 2013Q3

REPORT INFORMATION
  Report Type: Spontaneous
  Country: US (occurrence: US)
  Receive Date: 20130503
  Receipt Date: 20130723
  Transmission Date: 20140515
  Serious: Yes (Death, Hospitalization, Other)
  Sender: FDA-Public Use
  Company Number: US-B.I. PHARMACEUTICALS,INC./RIDGEFIELD-2013-BI-12223BP

PATIENT
  Age: 91 Year
  Sex: Male
  Weight: 76.66 kg

DRUGS (9)
  1. PRADAXA [Suspect]
     Indication: ANTICOAGULANT THERAPY
     Dosage: 300 MG
     Route: 048
     Dates: start: 20110127, end: 20110209
  2. LEVAQUIN [Concomitant]
  3. DIGOXIN [Concomitant]
  4. ZOCOR [Concomitant]
  5. ATENOLOL [Concomitant]
  6. OMEPRAZOLE [Concomitant]
  7. SYNTHROID [Concomitant]
  8. VESICARE [Concomitant]
  9. LOTRISONE CREAM [Concomitant]

REACTIONS (6)
  - Cardiac arrest [Fatal]
  - Gastrointestinal haemorrhage [Unknown]
  - Acute myocardial infarction [Unknown]
  - Coagulopathy [Unknown]
  - Ileus [Unknown]
  - Upper gastrointestinal haemorrhage [Unknown]
